FAERS Safety Report 19031270 (Version 2)
Quarter: 2021Q2

REPORT INFORMATION
  Report Type: Spontaneous
  Country: US (occurrence: US)
  Receive Date: 20210319
  Receipt Date: 20210505
  Transmission Date: 20210717
  Serious: No
  Sender: FDA-Public Use
  Company Number: US-ASTRAZENECA-2021A081219

PATIENT
  Age: 750 Month
  Sex: Female
  Weight: 54.8 kg

DRUGS (9)
  1. VITAMIN D2 [Concomitant]
     Active Substance: ERGOCALCIFEROL
  2. FASENRA [Suspect]
     Active Substance: BENRALIZUMAB
     Indication: ASTHMA
     Dosage: 30MG/ML MONTHLY
     Route: 058
     Dates: start: 202012
  3. PROAIR HFA [Concomitant]
     Active Substance: ALBUTEROL SULFATE
  4. XANAX [Concomitant]
     Active Substance: ALPRAZOLAM
  5. DUO?NEBS [Concomitant]
  6. SPIRIVA [Concomitant]
     Active Substance: TIOTROPIUM BROMIDE MONOHYDRATE
  7. SYMBICORT [Suspect]
     Active Substance: BUDESONIDE\FORMOTEROL FUMARATE DIHYDRATE
     Indication: ASTHMA
     Dosage: 160/4.5MCG, TAKEN AS NEEDED AS REQUIRED
     Route: 055
  8. FLONASE [Concomitant]
     Active Substance: FLUTICASONE PROPIONATE
  9. SINGULAIR [Concomitant]
     Active Substance: MONTELUKAST SODIUM

REACTIONS (2)
  - Rash erythematous [Unknown]
  - Inappropriate schedule of product administration [Unknown]

NARRATIVE: CASE EVENT DATE: 202102
